FAERS Safety Report 22737661 (Version 7)
Quarter: 2023Q4

REPORT INFORMATION
  Report Type: Report from Study
  Country: JP (occurrence: JP)
  Receive Date: 20230721
  Receipt Date: 20231019
  Transmission Date: 20240109
  Serious: Yes (Hospitalization)
  Sender: FDA-Public Use
  Company Number: JP-002147023-NVSC2023JP159502

PATIENT
  Age: 74 Year
  Sex: Male
  Weight: 63.5 kg

DRUGS (14)
  1. SABATOLIMAB [Suspect]
     Active Substance: SABATOLIMAB
     Indication: Myelodysplastic syndrome
     Dosage: CODE NOT BROKEN
     Route: 042
     Dates: start: 20201228, end: 20230718
  2. INVESTIGATIONAL PRODUCT [Suspect]
     Active Substance: INVESTIGATIONAL PRODUCT
     Indication: Myelodysplastic syndrome
     Dosage: CODE NOT BROKEN
     Route: 042
     Dates: start: 20201228, end: 20230718
  3. PLACEBO [Suspect]
     Active Substance: UNSPECIFIED INGREDIENT
     Indication: Myelodysplastic syndrome
     Dosage: CODE NOT BROKEN
     Route: 042
     Dates: start: 20201228, end: 20230718
  4. AZACITIDINE [Suspect]
     Active Substance: AZACITIDINE
     Indication: Myelodysplastic syndrome
     Dosage: 140 MG (75MG/M2)
     Route: 058
     Dates: start: 20201221
  5. AZACITIDINE [Suspect]
     Active Substance: AZACITIDINE
     Dosage: 52.5 MG/M2
     Route: 058
     Dates: start: 20210929
  6. AZACITIDINE [Suspect]
     Active Substance: AZACITIDINE
     Dosage: UNK
     Route: 058
     Dates: start: 20230213
  7. DEFERASIROX [Suspect]
     Active Substance: DEFERASIROX
     Indication: Iron overload
     Dosage: 720 MG
     Route: 065
     Dates: start: 20230117, end: 20230417
  8. DEFERASIROX [Suspect]
     Active Substance: DEFERASIROX
     Dosage: 90 MG
     Route: 065
     Dates: start: 20230710, end: 20230717
  9. PIRENOXINE [Concomitant]
     Active Substance: PIRENOXINE
     Indication: Cataract
     Dosage: UNK
     Route: 065
     Dates: start: 2011
  10. MAGNESIUM OXIDE [Concomitant]
     Active Substance: MAGNESIUM OXIDE
     Indication: Constipation
     Dosage: UNK
     Route: 065
     Dates: start: 20201222
  11. LUBIPROSTONE [Concomitant]
     Active Substance: LUBIPROSTONE
     Indication: Constipation
     Dosage: UNK
     Route: 065
     Dates: start: 20201224
  12. SENNOSIDES [Concomitant]
     Active Substance: SENNOSIDES
     Indication: Constipation
     Dosage: UNK
     Route: 065
     Dates: start: 20201224
  13. ACETAMINOPHEN [Concomitant]
     Active Substance: ACETAMINOPHEN
     Indication: Prophylaxis
     Dosage: UNK
     Route: 065
     Dates: start: 20210222
  14. CEVIMELINE HYDROCHLORIDE [Concomitant]
     Active Substance: CEVIMELINE HYDROCHLORIDE
     Indication: Sjogren^s syndrome
     Dosage: UNK
     Route: 065
     Dates: start: 20230426

REACTIONS (1)
  - Drug-induced liver injury [Recovered/Resolved]

NARRATIVE: CASE EVENT DATE: 20230718
